FAERS Safety Report 6692889-0 (Version None)
Quarter: 2010Q2

REPORT INFORMATION
  Report Type: 
  Country: None (occurrence: None)
  Receive Date: 20100415
  Receipt Date: 20100405
  Transmission Date: 20101027
  Serious: Yes (Hospitalization)
  Sender: FDA-Public Use
  Company Number: 007077

PATIENT
  Sex: Female

DRUGS (8)
  1. CERTOLIZUMAB PEGOL (CDP870) [Suspect]
     Indication: RHEUMATOID ARTHRITIS
     Dosage: SUBCUTANEOUS
     Route: 058
     Dates: start: 20100121, end: 20100121
  2. DICLOFENAC SODIUM [Suspect]
     Indication: RHEUMATOID ARTHRITIS
     Dosage: 75 MG, ORAL
     Route: 048
     Dates: start: 20090322, end: 20100204
  3. METHOTREXATE [Suspect]
     Indication: RHEUMATOID ARTHRITIS
     Dosage: 8 MG, ORAL
     Route: 048
     Dates: start: 20090225, end: 20100204
  4. PREDNISOLONE [Concomitant]
  5. FOLIC ACID [Concomitant]
  6. INDOMETHACIN SODIUM [Concomitant]
  7. TEPRENONE [Concomitant]
  8. ATORVASTATIN CALCIUM [Concomitant]

REACTIONS (16)
  - ABDOMINAL DISTENSION [None]
  - ABDOMINAL PAIN [None]
  - ANTIMITOCHONDRIAL ANTIBODY POSITIVE [None]
  - ASCITES [None]
  - BILIARY CIRRHOSIS PRIMARY [None]
  - BONE MARROW FAILURE [None]
  - CHILLS [None]
  - CHOLELITHIASIS [None]
  - DEHYDRATION [None]
  - DIARRHOEA [None]
  - DYSPEPSIA [None]
  - ENTEROCOLITIS VIRAL [None]
  - GASTROINTESTINAL OEDEMA [None]
  - HEPATIC STEATOSIS [None]
  - HEPATOMEGALY [None]
  - VOMITING [None]
